FAERS Safety Report 7300630-3 (Version None)
Quarter: 2011Q1

REPORT INFORMATION
  Report Type: 
  Country: None (occurrence: None)
  Receive Date: 20110218
  Receipt Date: 20081215
  Transmission Date: 20110831
  Serious: No
  Sender: FDA-Public Use
  Company Number: 2008BI034097

PATIENT
  Age: 46 Year
  Sex: Female

DRUGS (2)
  1. TYSABRI [Suspect]
     Indication: MULTIPLE SCLEROSIS
     Route: 042
     Dates: start: 20070118
  2. AMPYRA [Concomitant]
     Dates: start: 20101101

REACTIONS (5)
  - BALANCE DISORDER [None]
  - MALAISE [None]
  - TREMOR [None]
  - APHASIA [None]
  - FATIGUE [None]
